FAERS Safety Report 9376158 (Version 1)
Quarter: 2013Q2

REPORT INFORMATION
  Report Type: Spontaneous
  Country: FR (occurrence: FR)
  Receive Date: 20130630
  Receipt Date: 20130630
  Transmission Date: 20140414
  Serious: Yes (Life-Threatening, Hospitalization, Other)
  Sender: FDA-Public Use
  Company Number: FR-TEVA-416199ISR

PATIENT
  Age: 90 Year
  Sex: Female

DRUGS (1)
  1. FUROSEMIDE TEVA 40 MG [Suspect]
     Indication: DYSPNOEA
     Dosage: 1 DOSAGE FORMS DAILY; SCORED TABLET
     Route: 048
     Dates: start: 20130516, end: 20130522

REACTIONS (5)
  - Altered state of consciousness [Unknown]
  - Fall [Recovered/Resolved]
  - Femoral neck fracture [Unknown]
  - Somnolence [Unknown]
  - Dizziness [Recovered/Resolved]
